FAERS Safety Report 17130154 (Version 1)
Quarter: 2019Q4

REPORT INFORMATION
  Report Type: Spontaneous
  Country: US (occurrence: US)
  Receive Date: 20191209
  Receipt Date: 20191209
  Transmission Date: 20200122
  Serious: No
  Sender: FDA-Public Use
  Company Number: US-AKRON, INC.-2077621

PATIENT
  Sex: Male

DRUGS (1)
  1. KETOROLAC TROMETHAMINE 0.5% [Suspect]
     Active Substance: KETOROLAC TROMETHAMINE
     Route: 047

REACTIONS (1)
  - Eye irritation [Recovered/Resolved]
